FAERS Safety Report 8173311-4 (Version None)
Quarter: 2012Q1

REPORT INFORMATION
  Report Type: 
  Country: None (occurrence: None)
  Receive Date: 20120229
  Receipt Date: 20120227
  Transmission Date: 20120608
  Serious: Yes (Hospitalization)
  Sender: FDA-Public Use
  Company Number: US-PFIZER INC-2012014221

PATIENT
  Age: 55 Year
  Sex: Male
  Weight: 75.75 kg

DRUGS (1)
  1. IBUPROFEN [Suspect]
     Indication: PAIN IN JAW
     Dosage: 400 MG, 2X/DAY
     Route: 048
     Dates: start: 20070720, end: 20070701

REACTIONS (2)
  - HAEMATEMESIS [None]
  - GASTRIC HAEMORRHAGE [None]
